FAERS Safety Report 13568416 (Version 1)
Quarter: 2017Q2

REPORT INFORMATION
  Report Type: Spontaneous
  Country: US (occurrence: US)
  Receive Date: 20170522
  Receipt Date: 20170522
  Transmission Date: 20170830
  Serious: Yes (Hospitalization)
  Sender: FDA-Public Use
  Company Number: None

PATIENT
  Age: 84 Year
  Sex: Male

DRUGS (1)
  1. WARFARIN [Suspect]
     Active Substance: WARFARIN
     Indication: ATRIAL FIBRILLATION
     Route: 048

REACTIONS (10)
  - Somnolence [None]
  - Headache [None]
  - Back pain [None]
  - Fall [None]
  - Confusional state [None]
  - Syncope [None]
  - Head injury [None]
  - Pain [None]
  - Contusion [None]
  - Subdural haematoma [None]

NARRATIVE: CASE EVENT DATE: 20170515
